FAERS Safety Report 4687723-4 (Version None)
Quarter: 2005Q2

REPORT INFORMATION
  Report Type: 
  Country: None (occurrence: None)
  Receive Date: 20050608
  Receipt Date: 20050608
  Transmission Date: 20051028
  Serious: Yes (Life-Threatening, Other)
  Sender: FDA-Public Use
  Company Number: None

PATIENT
  Age: 20 Year
  Sex: Female
  Weight: 47.3 kg

DRUGS (5)
  1. CIPROFLOXACIN HCL [Suspect]
     Indication: CATHETER RELATED INFECTION
     Dosage: 400MG IV Q 12 HRS
     Route: 042
     Dates: start: 20050523, end: 20050602
  2. GEMTUZUMAB [Suspect]
     Indication: ACUTE MYELOID LEUKAEMIA
     Dosage: 4.4 MG IV ONCE
     Route: 042
     Dates: start: 20050324
  3. CELEBREX [Concomitant]
  4. CASPOFUNGIN [Concomitant]
  5. MORPHINE [Concomitant]

REACTIONS (4)
  - AFFECT LABILITY [None]
  - AMNESIA [None]
  - DISORIENTATION [None]
  - HALLUCINATION, VISUAL [None]
